FAERS Safety Report 22308646 (Version 3)
Quarter: 2023Q2

REPORT INFORMATION
  Report Type: Spontaneous
  Country: BR (occurrence: BR)
  Receive Date: 20230511
  Receipt Date: 20230523
  Transmission Date: 20230721
  Serious: No
  Sender: FDA-Public Use
  Company Number: BR-Waylis Therapeutics LLC-ATNAHS20230501416

PATIENT
  Age: 68 Year
  Sex: Female

DRUGS (3)
  1. VALIUM [Suspect]
     Active Substance: DIAZEPAM
     Indication: Epilepsy
     Dosage: SINCE THE AGE OF 24 SHE HAS BEEN TAKING THE DRUG
     Dates: start: 1986
  2. PHENOBARBITAL [Concomitant]
     Active Substance: PHENOBARBITAL
     Indication: Epilepsy
     Dosage: 1 TABLET AT NIGHT
  3. DIAZEPAM [Concomitant]
     Active Substance: DIAZEPAM
     Indication: Epilepsy
     Dates: start: 2013, end: 2013

REACTIONS (1)
  - Product use in unapproved indication [Unknown]
